FAERS Safety Report 6444234-3 (Version None)
Quarter: 2009Q4

REPORT INFORMATION
  Report Type: 
  Country: None (occurrence: None)
  Receive Date: 20091118
  Receipt Date: 20091109
  Transmission Date: 20100525
  Serious: Yes (Death)
  Sender: FDA-Public Use
  Company Number: US-SP-2009-04838

PATIENT
  Age: 55 Year
  Sex: Male

DRUGS (5)
  1. IMMUNE GLOBULIN (HUMAN) [Suspect]
     Indication: IMMUNISATION
     Route: 065
     Dates: start: 20081122
  2. IMMUNE GLOBULIN (HUMAN) [Suspect]
     Route: 065
     Dates: start: 20081122
  3. RABIES VACCINE [Suspect]
     Indication: IMMUNISATION
     Route: 065
     Dates: start: 20081122
  4. DIPHTHERIA AND TETANUS TOXOIDS [Suspect]
     Indication: IMMUNISATION
     Route: 065
     Dates: start: 20081122
  5. DIPHTHERIA AND TETANUS TOXOIDS [Suspect]
     Route: 065
     Dates: start: 20081122

REACTIONS (13)
  - ANXIETY [None]
  - BRADYCARDIA [None]
  - BRAIN HERNIATION [None]
  - CHEST PAIN [None]
  - DEHYDRATION [None]
  - DYSPHAGIA [None]
  - HYPOAESTHESIA FACIAL [None]
  - HYPOTENSION [None]
  - INAPPROPRIATE SCHEDULE OF DRUG ADMINISTRATION [None]
  - INTRACRANIAL PRESSURE INCREASED [None]
  - LACTIC ACIDOSIS [None]
  - RABIES [None]
  - RENAL FAILURE ACUTE [None]
